FAERS Safety Report 9324069 (Version 1)
Quarter: 2013Q2

REPORT INFORMATION
  Report Type: Spontaneous
  Country: PL (occurrence: PL)
  Receive Date: 20130603
  Receipt Date: 20130603
  Transmission Date: 20140414
  Serious: Yes (Other)
  Sender: FDA-Public Use
  Company Number: PL-BAYER-2013-064846

PATIENT
  Age: 30 Year
  Sex: Female

DRUGS (2)
  1. QLAIRA [Suspect]
     Indication: MENORRHAGIA
     Dosage: UNK
     Route: 048
     Dates: start: 20121002, end: 20130422
  2. QLAIRA [Suspect]
     Indication: DYSMENORRHOEA

REACTIONS (7)
  - Abdominal pain [None]
  - Drug ineffective [None]
  - Palpitations [None]
  - Migraine [None]
  - Vomiting [None]
  - Haemorrhagic ovarian cyst [None]
  - Endometriosis [None]
